FAERS Safety Report 7821999-7 (Version None)
Quarter: 2011Q4

REPORT INFORMATION
  Report Type: 
  Country: None (occurrence: None)
  Receive Date: 20111018
  Receipt Date: 20111005
  Transmission Date: 20120403
  Serious: Yes (Other)
  Sender: FDA-Public Use
  Company Number: PHHY2011BR88447

PATIENT
  Sex: Male

DRUGS (2)
  1. DIOVAN [Suspect]
     Dosage: 80 MG, UNK
  2. EXFORGE [Suspect]
     Dosage: 1 DF, (160MG VALS AND 5MG AMLO)

REACTIONS (1)
  - BLOOD PRESSURE INADEQUATELY CONTROLLED [None]
